FAERS Safety Report 5301842-0 (Version None)
Quarter: 2007Q2

REPORT INFORMATION
  Report Type: 
  Country: None (occurrence: None)
  Receive Date: 20070416
  Receipt Date: 20070416
  Transmission Date: 20071010
  Serious: Yes (Death, Hospitalization)
  Sender: FDA-Public Use
  Company Number: None

PATIENT
  Sex: Male

DRUGS (10)
  1. BEVACIZUMAB (GENENTECH) [Suspect]
     Indication: GLIOBLASTOMA MULTIFORME
     Dosage: 10 MG/KG
     Dates: start: 20070313
  2. ERLOTINIB (GENENTECH) [Suspect]
     Indication: GLIOBLASTOMA MULTIFORME
     Dosage: 200 MG/DAY
     Dates: start: 20070312
  3. TOPROL-XL [Concomitant]
  4. PREVACID [Concomitant]
  5. RITALIN [Concomitant]
  6. KEPPRA [Concomitant]
  7. DECADRON [Concomitant]
  8. LOVASTATIN [Concomitant]
  9. COLACE [Concomitant]
  10. LESINORPIL [Concomitant]

REACTIONS (9)
  - DEHYDRATION [None]
  - FALL [None]
  - HYPONATRAEMIA [None]
  - MALIGNANT NEOPLASM PROGRESSION [None]
  - NAUSEA [None]
  - NUCLEAR MAGNETIC RESONANCE IMAGING BRAIN ABNORMAL [None]
  - PNEUMONIA [None]
  - SOMNOLENCE [None]
  - VOMITING [None]
